FAERS Safety Report 5523639-9 (Version None)
Quarter: 2007Q4

REPORT INFORMATION
  Report Type: 
  Country: None (occurrence: None)
  Receive Date: 20071121
  Receipt Date: 20071114
  Transmission Date: 20080405
  Serious: Yes (Hospitalization)
  Sender: FDA-Public Use
  Company Number: ZW-GILEAD-2007-0013376

PATIENT
  Age: 34 Year
  Sex: Female
  Weight: 60 kg

DRUGS (3)
  1. TENOFOVIR DISOPROXIL FUMARATE [Suspect]
     Indication: HIV INFECTION
     Route: 048
     Dates: start: 20070329, end: 20070831
  2. EMTRICITABINE [Suspect]
     Indication: HIV INFECTION
     Route: 048
     Dates: start: 20070329, end: 20070831
  3. KALETRA [Suspect]
     Indication: HIV INFECTION
     Route: 048
     Dates: start: 20070329, end: 20070831

REACTIONS (2)
  - NEPHROPATHY TOXIC [None]
  - PNEUMONIA [None]
